FAERS Safety Report 9195981 (Version 2)
Quarter: 2013Q2

REPORT INFORMATION
  Report Type: Report from Study
  Country: CA (occurrence: CA)
  Receive Date: 20130328
  Receipt Date: 20130401
  Transmission Date: 20140414
  Serious: Yes (Hospitalization)
  Sender: FDA-Public Use
  Company Number: PHHY2013CA029895

PATIENT
  Sex: Male

DRUGS (5)
  1. CLOZARIL [Suspect]
     Indication: ESSENTIAL TREMOR
     Dosage: 25 MG, QD
     Route: 048
     Dates: start: 20130226, end: 20130320
  2. VENLAFAXINE [Concomitant]
     Dosage: UNK
  3. ARIPIPRAZOLE [Concomitant]
     Dosage: UNK
  4. QUETIAPINE [Concomitant]
     Dosage: UNK
  5. CLONAZEPAM [Concomitant]
     Dosage: UNK

REACTIONS (1)
  - Road traffic accident [Unknown]
